FAERS Safety Report 16772013 (Version 1)
Quarter: 2019Q3

REPORT INFORMATION
  Report Type: Spontaneous
  Country: FR (occurrence: FR)
  Receive Date: 20190904
  Receipt Date: 20190904
  Transmission Date: 20191005
  Serious: Yes (Hospitalization)
  Sender: FDA-Public Use
  Company Number: FR-TEVA-2019-FR-1100847

PATIENT
  Age: 90 Year
  Sex: Female
  Weight: 81.75 kg

DRUGS (7)
  1. ASPEGIC [ACETYLSALICYLIC ACID] [Suspect]
     Active Substance: ASPIRIN
     Indication: OSTEOARTHRITIS
     Route: 048
     Dates: end: 20190731
  2. DICLOFENAC [Suspect]
     Active Substance: DICLOFENAC
     Indication: OSTEOARTHRITIS
     Dosage: 1 APPLICATION 3 TIMES / DAY
     Route: 003
     Dates: end: 20190731
  3. FEMARA [Concomitant]
     Active Substance: LETROZOLE
  4. AMLODIPINE [Concomitant]
     Active Substance: AMLODIPINE BESYLATE
  5. PARACETAMOL [Concomitant]
     Active Substance: ACETAMINOPHEN
  6. TENSIONORME [Suspect]
     Active Substance: BENDROFLUMETHIAZIDE\RESERPINE
     Indication: HYPERTENSION
     Dosage: 2,5 MG-0,1 MG
     Route: 048
     Dates: end: 20190801
  7. ADENURIC [Concomitant]
     Active Substance: FEBUXOSTAT

REACTIONS (4)
  - Iron deficiency anaemia [Recovering/Resolving]
  - Gastric ulcer [Recovering/Resolving]
  - Dyspnoea exertional [Recovering/Resolving]
  - Melaena [Recovering/Resolving]

NARRATIVE: CASE EVENT DATE: 201907
